FAERS Safety Report 24713807 (Version 1)
Quarter: 2024Q4

REPORT INFORMATION
  Report Type: Spontaneous
  Country: US (occurrence: US)
  Receive Date: 20241209
  Receipt Date: 20241209
  Transmission Date: 20250115
  Serious: No
  Sender: REGENERON
  Company Number: US-REGENERON PHARMACEUTICALS, INC.-2024-060590

PATIENT
  Sex: Male

DRUGS (3)
  1. EYLEA [Suspect]
     Active Substance: AFLIBERCEPT
     Indication: Diabetic retinopathy
     Dosage: 2 MG, MONTHLY; FORMULATION: GERRESHEIMER PFS
     Dates: start: 20231201
  2. EYLEA [Suspect]
     Active Substance: AFLIBERCEPT
     Indication: Diabetic retinal oedema
     Dosage: 2 MG, MONTHLY; FORMULATION: GERRESHEIMER PFS
     Dates: start: 20240328
  3. EYLEA [Suspect]
     Active Substance: AFLIBERCEPT
     Indication: Glaucoma

REACTIONS (3)
  - Intraocular pressure increased [Unknown]
  - Product dose omission issue [Unknown]
  - Off label use [Not Recovered/Not Resolved]

NARRATIVE: CASE EVENT DATE: 20231201
